FAERS Safety Report 20686055 (Version 1)
Quarter: 2022Q2

REPORT INFORMATION
  Report Type: Spontaneous
  Country: US (occurrence: US)
  Receive Date: 20220407
  Receipt Date: 20220407
  Transmission Date: 20220721
  Serious: No
  Sender: FDA-Public Use
  Company Number: US-JAZZ-2021-US-019043

PATIENT
  Sex: Female

DRUGS (2)
  1. SUNOSI [Suspect]
     Active Substance: SOLRIAMFETOL
     Indication: Off label use
     Dosage: 75 MILLIGRAM, QD
     Route: 048
  2. SUNOSI [Suspect]
     Active Substance: SOLRIAMFETOL
     Dosage: 37.5 MILLIGRAM, QD
     Route: 048

REACTIONS (2)
  - Heart rate increased [Recovered/Resolved]
  - Off label use [Unknown]
